FAERS Safety Report 9838729 (Version 2)
Quarter: 2014Q2

REPORT INFORMATION
  Report Type: Spontaneous
  Country: GB (occurrence: None)
  Receive Date: 20140116
  Receipt Date: 20140401
  Transmission Date: 20141212
  Serious: Yes (Other)
  Sender: FDA-Public Use
  Company Number: 2014SCDP000002

PATIENT
  Age: 41 Year
  Sex: Male

DRUGS (2)
  1. CARBOCAIN [Suspect]
     Indication: TOOTH REPAIR
     Dosage: 3 AMPOULES OF 1.8ML
     Dates: start: 20131218, end: 20131218
  2. CARBOCAIN [Suspect]
     Dosage: 3 AMPOULES OF 1.8ML
     Dates: start: 20131218, end: 20131218

REACTIONS (3)
  - Pulse pressure decreased [None]
  - Nausea [None]
  - Depressed level of consciousness [None]
